FAERS Safety Report 21229683 (Version 1)
Quarter: 2022Q3

REPORT INFORMATION
  Report Type: Spontaneous
  Country: US (occurrence: US)
  Receive Date: 20220818
  Receipt Date: 20220818
  Transmission Date: 20221026
  Serious: No
  Sender: FDA-Public Use
  Company Number: US-PFIZER INC-202201068036

PATIENT
  Age: 67 Year
  Sex: Male
  Weight: 95.238 kg

DRUGS (1)
  1. ATORVASTATIN CALCIUM [Suspect]
     Active Substance: ATORVASTATIN CALCIUM
     Dosage: 10-20 MG
     Dates: start: 2009, end: 2018

REACTIONS (1)
  - Fatigue [Unknown]
